FAERS Safety Report 20852008 (Version 1)
Quarter: 2022Q2

REPORT INFORMATION
  Report Type: Spontaneous
  Country: AR (occurrence: AR)
  Receive Date: 20220520
  Receipt Date: 20220520
  Transmission Date: 20220720
  Serious: Yes (Other)
  Sender: FDA-Public Use
  Company Number: AR-PFIZER INC-202200706942

PATIENT
  Age: 53 Year
  Sex: Female

DRUGS (1)
  1. ENBREL [Suspect]
     Active Substance: ETANERCEPT
     Indication: Psoriatic arthropathy
     Dosage: 50 MG, EVERY 15 DAYS
     Route: 065
     Dates: start: 20151120

REACTIONS (3)
  - Limb injury [Not Recovered/Not Resolved]
  - Off label use [Not Recovered/Not Resolved]
  - Accident [Not Recovered/Not Resolved]
